FAERS Safety Report 16690433 (Version 2)
Quarter: 2019Q3

REPORT INFORMATION
  Report Type: Report from Study
  Country: US (occurrence: US)
  Receive Date: 20190810
  Receipt Date: 20190823
  Transmission Date: 20191004
  Serious: Yes (Death, Hospitalization, Other)
  Sender: FDA-Public Use
  Company Number: US-BRISTOL-MYERS SQUIBB COMPANY-BMS-2019-075288

PATIENT
  Age: 57 Year
  Sex: Male

DRUGS (1)
  1. IPILIMUMAB [Suspect]
     Active Substance: IPILIMUMAB
     Indication: MALIGNANT MELANOMA
     Dosage: INFUSE 4 VIALS OF 200 MG AND 3 VIALS OF 50 MG WITH STRENGTH 950 MG
     Route: 050

REACTIONS (2)
  - Death [Fatal]
  - Back disorder [Recovering/Resolving]

NARRATIVE: CASE EVENT DATE: 20190810
